FAERS Safety Report 7210672-4 (Version None)
Quarter: 2011Q1

REPORT INFORMATION
  Report Type: 
  Country: None (occurrence: None)
  Receive Date: 20110105
  Receipt Date: 20101227
  Transmission Date: 20110831
  Serious: No
  Sender: FDA-Public Use
  Company Number: US-PFIZER INC-2010156408

PATIENT
  Sex: Female

DRUGS (2)
  1. CELEBREX [Suspect]
     Dosage: UNK
  2. WARFARIN SODIUM [Suspect]
     Dosage: UNK

REACTIONS (2)
  - PAIN [None]
  - DRUG INEFFECTIVE [None]
